FAERS Safety Report 15580585 (Version 1)
Quarter: 2018Q4

REPORT INFORMATION
  Report Type: Spontaneous
  Country: US (occurrence: US)
  Receive Date: 20181102
  Receipt Date: 20181102
  Transmission Date: 20190205
  Serious: No
  Sender: FDA-Public Use
  Company Number: US-TEVA-2018-US-969796

PATIENT
  Age: 50 Year
  Sex: Female

DRUGS (2)
  1. COPAXONE [Suspect]
     Active Substance: GLATIRAMER ACETATE
     Route: 058
     Dates: start: 20081009, end: 20150614
  2. COPAXONE [Suspect]
     Active Substance: GLATIRAMER ACETATE
     Indication: MULTIPLE SCLEROSIS
     Route: 058
     Dates: start: 20170101

REACTIONS (11)
  - Dizziness [Unknown]
  - Injection site joint warmth [Unknown]
  - Throat tightness [Unknown]
  - Hypoaesthesia [Unknown]
  - Erythema [Unknown]
  - Flushing [Unknown]
  - Ocular hyperaemia [Unknown]
  - Feeling hot [Unknown]
  - Muscle spasms [Unknown]
  - Swelling face [Unknown]
  - Paraesthesia [Unknown]

NARRATIVE: CASE EVENT DATE: 20181024
